FAERS Safety Report 11342606 (Version 1)
Quarter: 2015Q3

REPORT INFORMATION
  Report Type: Other
  Country: US (occurrence: US)
  Receive Date: 20150805
  Receipt Date: 20150805
  Transmission Date: 20151125
  Serious: Yes (Other)
  Sender: FDA-Public Use
  Company Number: US-SHIRE-US201509288

PATIENT
  Sex: Male

DRUGS (1)
  1. FIRAZYR [Suspect]
     Active Substance: ICATIBANT ACETATE
     Indication: HEREDITARY ANGIOEDEMA
     Dosage: 30 ML, AS REQ^D
     Route: 058
     Dates: start: 20141111

REACTIONS (2)
  - Spinal cord neoplasm [Unknown]
  - Brain neoplasm [Unknown]
